FAERS Safety Report 21068091 (Version 1)
Quarter: 2022Q3

REPORT INFORMATION
  Report Type: Spontaneous
  Country: FR (occurrence: FR)
  Receive Date: 20220712
  Receipt Date: 20220712
  Transmission Date: 20221026
  Serious: Yes (Hospitalization)
  Sender: FDA-Public Use
  Company Number: None

PATIENT
  Age: 72 Year
  Sex: Male
  Weight: 63 kg

DRUGS (9)
  1. REMICADE [Suspect]
     Active Substance: INFLIXIMAB
     Indication: Colitis
     Route: 041
     Dates: start: 20211221, end: 20220105
  2. OFLOXACIN [Concomitant]
     Active Substance: OFLOXACIN
  3. RACECADOTRIL ARROW [Concomitant]
  4. TAMSULOSIN HYDROCHLORIDE [Concomitant]
     Active Substance: TAMSULOSIN HYDROCHLORIDE
  5. OXYPLASTINE [Concomitant]
  6. POLARAMINE [Concomitant]
     Active Substance: DEXCHLORPHENIRAMINE MALEATE
  7. SMECTA [Concomitant]
     Active Substance: MONTMORILLONITE
  8. LOVENOX [Concomitant]
     Active Substance: ENOXAPARIN SODIUM
  9. HUMALOG [Concomitant]
     Active Substance: INSULIN LISPRO

REACTIONS (2)
  - Dermatitis exfoliative generalised [Recovered/Resolved]
  - Hypertension [Recovered/Resolved]

NARRATIVE: CASE EVENT DATE: 20220105
